FAERS Safety Report 6923214-5 (Version None)
Quarter: 2010Q3

REPORT INFORMATION
  Report Type: 
  Country: None (occurrence: None)
  Receive Date: 20100811
  Receipt Date: 20100729
  Transmission Date: 20110219
  Serious: Yes (Hospitalization)
  Sender: FDA-Public Use
  Company Number: KV200801572

PATIENT
  Age: 46 Year
  Sex: Female
  Weight: 83.9 kg

DRUGS (14)
  1. MORPHINE SULFATE [Suspect]
     Indication: BACK PAIN
     Dosage: 120 MG, (TWO TABLETS) BID PRN, ORAL
     Route: 048
     Dates: start: 20080508, end: 20080512
  2. HYDROCODONE BITARTRATE AND ACETAMINOPHEN (HYDROCODONE BITARTRATE, PARA [Concomitant]
     Indication: BACK PAIN
     Dates: start: 20080508, end: 20080512
  3. CLONIDINE [Concomitant]
  4. OMEPRAZOLE [Concomitant]
  5. COZAAR [Concomitant]
  6. NORETHINDRONE [Concomitant]
  7. FUROSEMIDE [Concomitant]
  8. METOPROLOL SUCCINATE [Concomitant]
  9. SOMA [Concomitant]
  10. NORTRIPTYLINE HCL [Concomitant]
  11. POTASSIUM CHLORIDE [Concomitant]
  12. GABAPENTIN [Concomitant]
  13. CYMBALTA [Concomitant]
  14. PHENERGAN /00033001/ (PROMETHAZINE) [Concomitant]

REACTIONS (50)
  - ALOPECIA [None]
  - ANXIETY [None]
  - APPARENT DEATH [None]
  - ARTHRALGIA [None]
  - ARTHROPATHY [None]
  - ASTHENIA [None]
  - BACK PAIN [None]
  - CARDIOMEGALY [None]
  - CHEST PAIN [None]
  - CONFUSIONAL STATE [None]
  - DECREASED APPETITE [None]
  - DEHYDRATION [None]
  - DEPRESSION [None]
  - DISTURBANCE IN ATTENTION [None]
  - DRUG SCREEN POSITIVE [None]
  - DYSARTHRIA [None]
  - DYSPNOEA [None]
  - FACIAL BONES FRACTURE [None]
  - FALL [None]
  - FEELING GUILTY [None]
  - HEADACHE [None]
  - HEPATIC FAILURE [None]
  - HOT FLUSH [None]
  - HYPOAESTHESIA [None]
  - HYPOTENSION [None]
  - IMPAIRED FASTING GLUCOSE [None]
  - INSOMNIA [None]
  - LETHARGY [None]
  - MENTAL STATUS CHANGES [None]
  - MULTI-ORGAN FAILURE [None]
  - MUSCULOSKELETAL STIFFNESS [None]
  - OSTEOARTHRITIS [None]
  - OVERDOSE [None]
  - PAIN IN EXTREMITY [None]
  - PALPITATIONS [None]
  - PERONEAL NERVE PALSY [None]
  - PERSONALITY CHANGE DUE TO A GENERAL MEDICAL CONDITION [None]
  - PRODUCT QUALITY ISSUE [None]
  - PRURITUS [None]
  - RENAL FAILURE [None]
  - RHABDOMYOLYSIS [None]
  - SHOCK [None]
  - SOMNOLENCE [None]
  - SPINAL COLUMN STENOSIS [None]
  - STRESS [None]
  - SUPRAVENTRICULAR EXTRASYSTOLES [None]
  - TREATMENT NONCOMPLIANCE [None]
  - TYPE 2 DIABETES MELLITUS [None]
  - UNRESPONSIVE TO STIMULI [None]
  - VISUAL IMPAIRMENT [None]
